FAERS Safety Report 26137567 (Version 1)
Quarter: 2025Q4

REPORT INFORMATION
  Report Type: Spontaneous
  Country: US (occurrence: US)
  Receive Date: 20251209
  Receipt Date: 20251209
  Transmission Date: 20260118
  Serious: No
  Sender: GILEAD
  Company Number: US-GILEAD-2025-0740022

PATIENT
  Age: 39 Year
  Sex: Female

DRUGS (1)
  1. SELADELPAR [Suspect]
     Active Substance: SELADELPAR
     Indication: Product used for unknown indication
     Route: 065

REACTIONS (1)
  - Bleeding varicose vein [Unknown]

NARRATIVE: CASE EVENT DATE: 20251208
